FAERS Safety Report 4737450-X (Version None)
Quarter: 2005Q3

REPORT INFORMATION
  Report Type: 
  Country: None (occurrence: None)
  Receive Date: 20050809
  Receipt Date: 20050531
  Transmission Date: 20060218
  Serious: Yes (Hospitalization)
  Sender: FDA-Public Use
  Company Number: FI-NOVOPROD-244557

PATIENT
  Sex: Male

DRUGS (4)
  1. NOVOMIX 30 FLEXPEN [Suspect]
     Indication: ILL-DEFINED DISORDER
  2. NOVOMIX 30 FLEXPEN [Suspect]
  3. PROTAPHANE FLEXPEN [Suspect]
     Indication: ILL-DEFINED DISORDER
  4. PROTAPHANE FLEXPEN [Suspect]

REACTIONS (4)
  - BLOOD GLUCOSE INCREASED [None]
  - FATIGUE [None]
  - PHARMACEUTICAL PRODUCT COMPLAINT [None]
  - STRESS [None]
